FAERS Safety Report 8420106-X (Version None)
Quarter: 2012Q2

REPORT INFORMATION
  Report Type: 
  Country: None (occurrence: None)
  Receive Date: 20120607
  Receipt Date: 20120604
  Transmission Date: 20120825
  Serious: Yes (Death, Hospitalization, Other)
  Sender: FDA-Public Use
  Company Number: TW-ABBOTT-12P-153-0905001-00

PATIENT
  Sex: Male
  Weight: 48 kg

DRUGS (53)
  1. ALLEGRA [Concomitant]
     Indication: PRODUCT USED FOR UNKNOWN INDICATION
     Route: 048
     Dates: start: 20120204, end: 20120214
  2. FUSIDIC ACID [Concomitant]
     Indication: PRODUCT USED FOR UNKNOWN INDICATION
     Route: 061
     Dates: start: 20120201, end: 20120211
  3. KALIMATE [Concomitant]
     Indication: PRODUCT USED FOR UNKNOWN INDICATION
     Route: 048
     Dates: start: 20120130, end: 20120130
  4. PREDNISOLONE [Concomitant]
     Route: 048
     Dates: start: 20120203, end: 20120204
  5. FUROSEMIDE [Concomitant]
     Indication: PRODUCT USED FOR UNKNOWN INDICATION
     Dosage: STAT
     Route: 042
     Dates: start: 20120203, end: 20120204
  6. ULTRACET [Concomitant]
     Route: 048
     Dates: start: 20120130, end: 20120202
  7. HALF SALINE 500CC [Concomitant]
     Indication: PRODUCT USED FOR UNKNOWN INDICATION
     Route: 042
     Dates: start: 20120201, end: 20120211
  8. AUGMENTIN [Concomitant]
     Indication: PRODUCT USED FOR UNKNOWN INDICATION
     Route: 042
     Dates: start: 20120201, end: 20120203
  9. DESLORATADINE [Concomitant]
     Indication: PRODUCT USED FOR UNKNOWN INDICATION
     Route: 048
     Dates: start: 20120130, end: 20120201
  10. 15% KCL INJ [Concomitant]
     Indication: PRODUCT USED FOR UNKNOWN INDICATION
     Route: 042
     Dates: start: 20120205, end: 20120208
  11. PRIMPERAN TAB [Concomitant]
     Indication: PRODUCT USED FOR UNKNOWN INDICATION
     Dosage: STAT
     Route: 042
     Dates: start: 20120204, end: 20120204
  12. ERYMYCIN [Concomitant]
     Indication: PRODUCT USED FOR UNKNOWN INDICATION
     Route: 048
     Dates: start: 20120203, end: 20120205
  13. PIPERACILLIN AND TAZOBACTAM [Concomitant]
     Indication: PRODUCT USED FOR UNKNOWN INDICATION
     Route: 042
     Dates: start: 20120203, end: 20120206
  14. SILYMARIN [Concomitant]
     Indication: PRODUCT USED FOR UNKNOWN INDICATION
     Route: 048
     Dates: start: 20120202, end: 20120212
  15. ACETYLCYSTEINE [Concomitant]
     Indication: PRODUCT USED FOR UNKNOWN INDICATION
     Route: 048
     Dates: start: 20120201, end: 20120211
  16. TAPIMYCIN [Concomitant]
     Indication: PRODUCT USED FOR UNKNOWN INDICATION
     Route: 042
     Dates: start: 20120201, end: 20120201
  17. CLARITHROMYCIN [Concomitant]
     Indication: PRODUCT USED FOR UNKNOWN INDICATION
     Route: 048
     Dates: start: 20120205, end: 20120206
  18. PREDNISOLONE [Concomitant]
     Indication: PRODUCT USED FOR UNKNOWN INDICATION
     Route: 048
     Dates: start: 20120204
  19. AUGMENTIN [Concomitant]
     Route: 042
     Dates: start: 20120131, end: 20120201
  20. LACTUL [Concomitant]
     Indication: PRODUCT USED FOR UNKNOWN INDICATION
     Route: 048
     Dates: start: 20120130, end: 20120130
  21. BENZONATATE [Concomitant]
     Indication: PRODUCT USED FOR UNKNOWN INDICATION
     Dosage: 1 CAP BID AND QHS
     Route: 048
     Dates: start: 20120130, end: 20120131
  22. 15% KCL INJ [Concomitant]
     Route: 042
     Dates: start: 20120205, end: 20120205
  23. ACETAMINOPHEN [Concomitant]
     Dosage: 1 TAB Q6H PRN
     Route: 048
     Dates: start: 20120202, end: 20120205
  24. CIMEWELL [Concomitant]
     Indication: PRODUCT USED FOR UNKNOWN INDICATION
     Dosage: STAT
     Route: 048
     Dates: start: 20120205, end: 20120205
  25. FUROSEMIDE [Concomitant]
     Route: 042
     Dates: start: 20120201, end: 20120202
  26. ISMO [Concomitant]
     Indication: PRODUCT USED FOR UNKNOWN INDICATION
     Route: 048
     Dates: start: 20120202, end: 20120203
  27. HALF SALINE 500CC [Concomitant]
     Dosage: STAT
     Route: 042
     Dates: start: 20120130, end: 20120130
  28. HALF SALINE 500CC [Concomitant]
     Route: 042
     Dates: start: 20120130, end: 20120130
  29. HALF SALINE 500CC [Concomitant]
     Route: 042
     Dates: start: 20120130, end: 20120201
  30. SOLU-CORTEF [Concomitant]
     Indication: PRODUCT USED FOR UNKNOWN INDICATION
     Route: 042
     Dates: start: 20120201, end: 20120203
  31. FOLIC ACID [Concomitant]
     Indication: PRODUCT USED FOR UNKNOWN INDICATION
     Route: 048
     Dates: start: 20120130, end: 20120209
  32. HUMIRA [Suspect]
     Indication: RHEUMATOID ARTHRITIS
     Dates: start: 20090601, end: 20110606
  33. ACETAMINOPHEN [Concomitant]
     Indication: PRODUCT USED FOR UNKNOWN INDICATION
     Dosage: 1 TAB Q6H PRN
     Dates: start: 20120205, end: 20120208
  34. EVAC ENEMA [Concomitant]
     Indication: PRODUCT USED FOR UNKNOWN INDICATION
     Dosage: STAT
     Route: 054
     Dates: start: 20120205, end: 20120205
  35. CIMEWELL [Concomitant]
     Route: 048
     Dates: start: 20120130, end: 20120201
  36. PREDNISOLONE [Concomitant]
     Route: 048
     Dates: start: 20120203, end: 20120203
  37. PREDNISOLONE [Concomitant]
     Route: 048
     Dates: start: 20120202, end: 20120203
  38. PREDNISOLONE [Concomitant]
     Route: 048
     Dates: start: 20120130, end: 20120130
  39. OMELON [Concomitant]
     Indication: PRODUCT USED FOR UNKNOWN INDICATION
     Dosage: QDAC
     Route: 048
     Dates: start: 20120201, end: 20120211
  40. SOLU-CORTEF [Concomitant]
     Route: 042
     Dates: start: 20120130, end: 20120201
  41. UDV COMBIVENT [Concomitant]
     Indication: PRODUCT USED FOR UNKNOWN INDICATION
     Route: 055
     Dates: start: 20120130
  42. XANTHIUM [Concomitant]
     Indication: PRODUCT USED FOR UNKNOWN INDICATION
     Route: 048
     Dates: start: 20120130, end: 20120209
  43. VALSARTAN [Concomitant]
     Indication: PRODUCT USED FOR UNKNOWN INDICATION
     Route: 048
     Dates: start: 20120130, end: 20120205
  44. MEPERIDINE HCL [Concomitant]
     Indication: PRODUCT USED FOR UNKNOWN INDICATION
     Dosage: 12.5 MG Q6H PRN
     Route: 042
     Dates: start: 20120205, end: 20120210
  45. ULTRACET [Concomitant]
     Indication: PRODUCT USED FOR UNKNOWN INDICATION
     Route: 048
     Dates: start: 20120202, end: 20120205
  46. ARAVA [Concomitant]
     Indication: PRODUCT USED FOR UNKNOWN INDICATION
     Route: 048
     Dates: start: 20120130, end: 20120201
  47. FUNGIZONE [Suspect]
     Indication: MENINGITIS CRYPTOCOCCAL
     Dates: start: 20120207
  48. FUROSEMIDE [Concomitant]
     Route: 048
     Dates: start: 20120201, end: 20120201
  49. TUBERSOL [Concomitant]
     Indication: PRODUCT USED FOR UNKNOWN INDICATION
     Dosage: STAT
     Dates: start: 20120203, end: 20120203
  50. SILYMARIN [Concomitant]
     Route: 048
     Dates: start: 20120130, end: 20120202
  51. UNASYN [Concomitant]
     Indication: PRODUCT USED FOR UNKNOWN INDICATION
     Route: 042
     Dates: start: 20120130, end: 20120131
  52. METHOTREXATE [Concomitant]
     Indication: PRODUCT USED FOR UNKNOWN INDICATION
     Route: 048
     Dates: start: 20120130, end: 20120131
  53. OMELON [Concomitant]
     Dosage: 20 MG QN
     Route: 048
     Dates: start: 20120130, end: 20120201

REACTIONS (12)
  - PULMONARY MASS [None]
  - DISSEMINATED INTRAVASCULAR COAGULATION [None]
  - ACUTE RESPIRATORY DISTRESS SYNDROME [None]
  - BLOOD CREATININE INCREASED [None]
  - HYPOTENSION [None]
  - MENINGITIS CRYPTOCOCCAL [None]
  - THROMBOCYTOPENIA [None]
  - PNEUMONIA BACTERIAL [None]
  - PNEUMONIA CRYPTOCOCCAL [None]
  - UPPER GASTROINTESTINAL HAEMORRHAGE [None]
  - PULMONARY OEDEMA [None]
  - RESPIRATORY ACIDOSIS [None]
